FAERS Safety Report 21445997 (Version 2)
Quarter: 2022Q4

REPORT INFORMATION
  Report Type: Spontaneous
  Country: SE (occurrence: SE)
  Receive Date: 20221012
  Receipt Date: 20221025
  Transmission Date: 20230112
  Serious: Yes (Hospitalization)
  Sender: FDA-Public Use
  Company Number: SE-BAYER-2022A139550

PATIENT
  Age: 22 Year
  Sex: Female

DRUGS (2)
  1. MIRENA [Suspect]
     Active Substance: LEVONORGESTREL
     Indication: Ovulation disorder
     Dosage: 20?G/DAY
     Route: 015
     Dates: start: 20191128, end: 20220929
  2. MIRENA [Suspect]
     Active Substance: LEVONORGESTREL
     Indication: Amenorrhoea
     Dosage: 20?G/DAY
     Route: 015
     Dates: start: 20220929

REACTIONS (4)
  - Ovulation pain [Recovered/Resolved with Sequelae]
  - Mood swings [Recovered/Resolved]
  - Off label use of device [None]
  - Device use issue [None]

NARRATIVE: CASE EVENT DATE: 20220615
